FAERS Safety Report 9149634 (Version 1)
Quarter: 2013Q1

REPORT INFORMATION
  Report Type: Spontaneous
  Country: JP (occurrence: JP)
  Receive Date: 20130308
  Receipt Date: 20130308
  Transmission Date: 20140127
  Serious: Yes (Disabling)
  Sender: FDA-Public Use
  Company Number: JP-ASTELLAS-2012JP008627

PATIENT
  Age: 82 Year
  Sex: Female
  Weight: 142.2 kg

DRUGS (10)
  1. BETANIS [Suspect]
     Indication: HYPERTONIC BLADDER
     Dosage: 50 MG, UID/QD
     Route: 048
     Dates: start: 20120414, end: 2012
  2. AMLODIN [Concomitant]
     Indication: HYPERTENSION
     Dosage: 5 MG, UID/QD
     Route: 048
  3. PROTECADIN [Concomitant]
     Indication: GASTRITIS EROSIVE
     Dosage: 10 MG, UID/QD
     Route: 048
  4. EDIROL [Concomitant]
     Indication: OSTEOPOROSIS
     Dosage: 0.75 UG, UID/QD
     Route: 048
  5. MAINTATE [Concomitant]
     Indication: SUPRAVENTRICULAR EXTRASYSTOLES
     Dosage: 2.5 MG, UID/QD
     Route: 048
  6. MAINTATE [Concomitant]
     Indication: HYPERTENSION
  7. GASLON N [Concomitant]
     Indication: GASTRITIS EROSIVE
     Dosage: 2 MG, BID
     Route: 048
  8. CIBENOL [Concomitant]
     Indication: SUPRAVENTRICULAR EXTRASYSTOLES
     Dosage: 100 MG, BID
     Route: 048
     Dates: start: 20110318
  9. BUP-4 [Concomitant]
     Indication: HYPERTONIC BLADDER
     Dosage: UNK
     Route: 048
     Dates: end: 20120413
  10. BUP-4 [Concomitant]
     Dosage: UNK
     Route: 048
     Dates: start: 2012

REACTIONS (1)
  - Arrhythmia [Recovered/Resolved]
